FAERS Safety Report 9333758 (Version 1)
Quarter: 2013Q2

REPORT INFORMATION
  Report Type: Report from Study
  Country: US (occurrence: US)
  Receive Date: 20130606
  Receipt Date: 20130606
  Transmission Date: 20140414
  Serious: Yes (Hospitalization)
  Sender: FDA-Public Use
  Company Number: US-UCBSA-079528

PATIENT
  Age: 0 Day
  Sex: Male
  Weight: 3.51 kg

DRUGS (2)
  1. KEPPRA [Suspect]
     Route: 063
  2. KEPPRA [Suspect]
     Route: 064

REACTIONS (4)
  - Pallor [Recovered/Resolved]
  - Feeding disorder neonatal [Recovered/Resolved]
  - Foetal exposure during pregnancy [Recovered/Resolved]
  - Exposure during breast feeding [Unknown]
